FAERS Safety Report 20879641 (Version 2)
Quarter: 2022Q2

REPORT INFORMATION
  Report Type: Spontaneous
  Country: GR (occurrence: GR)
  Receive Date: 20220526
  Receipt Date: 20220606
  Transmission Date: 20220721
  Serious: Yes (Other)
  Sender: FDA-Public Use
  Company Number: GR-UCBSA-2022029652

PATIENT
  Age: 23 Year
  Sex: Female
  Weight: 55 kg

DRUGS (13)
  1. VIMPAT [Suspect]
     Active Substance: LACOSAMIDE
     Indication: Generalised tonic-clonic seizure
     Dosage: 200 MILLIGRAM, 2X/DAY (BID)
  2. VIMPAT [Suspect]
     Active Substance: LACOSAMIDE
     Dosage: 150 MILLIGRAM PER DAY
  3. BRIVARACETAM [Suspect]
     Active Substance: BRIVARACETAM
     Indication: Generalised tonic-clonic seizure
     Dosage: 75 MILLIGRAM 2X/DAY (BID)
  4. BRIVARACETAM [Suspect]
     Active Substance: BRIVARACETAM
     Indication: Off label use
  5. LAMOTRIGINE [Concomitant]
     Active Substance: LAMOTRIGINE
     Indication: Generalised tonic-clonic seizure
     Dosage: 175 MILLIGRAM PER DAY
  6. ZYPREXA [Concomitant]
     Active Substance: OLANZAPINE
     Indication: Product used for unknown indication
     Dosage: UNKNOWN DOSE
  7. ABILIFY [Concomitant]
     Active Substance: ARIPIPRAZOLE
     Indication: Product used for unknown indication
     Dosage: UNKNOWN DOSE
  8. VENLAFAXINE HYDROCHLORIDE [Concomitant]
     Active Substance: VENLAFAXINE HYDROCHLORIDE
     Indication: Product used for unknown indication
     Dosage: 150 MILLIGRAM 24H
  9. MILITHIN [Concomitant]
     Indication: Product used for unknown indication
     Dosage: 300 MILLIGRAM 24H
  10. SEROQUEL [Concomitant]
     Active Substance: QUETIAPINE FUMARATE
     Indication: Product used for unknown indication
     Dosage: 125 MILLIGRAM 24H
  11. AKINETON [Concomitant]
     Active Substance: BIPERIDEN HYDROCHLORIDE
     Indication: Product used for unknown indication
     Dosage: 2 MILLIGRAM 24H
  12. TAVOR (LORAZEPAM) [Concomitant]
     Active Substance: LORAZEPAM
     Indication: Product used for unknown indication
     Dosage: 2.5 MILLIGRAM*3
  13. VALPROIC ACID [Concomitant]
     Active Substance: VALPROIC ACID
     Indication: Product used for unknown indication
     Dosage: UNKNOWN DOSE

REACTIONS (5)
  - Generalised tonic-clonic seizure [Recovered/Resolved]
  - Dizziness [Recovered/Resolved]
  - Headache [Recovered/Resolved]
  - Vision blurred [Recovered/Resolved]
  - Off label use [Unknown]
